FAERS Safety Report 7931117-2 (Version None)
Quarter: 2011Q4

REPORT INFORMATION
  Report Type: 
  Country: None (occurrence: None)
  Receive Date: 20111118
  Receipt Date: 20111118
  Transmission Date: 20120403
  Serious: Yes (Life-Threatening, Other)
  Sender: FDA-Public Use
  Company Number: None

PATIENT
  Age: 80 Year
  Sex: Female
  Weight: 63.5036 kg

DRUGS (1)
  1. ZOLPIDEM [Suspect]
     Indication: INSOMNIA
     Dosage: 10 MGS. 1 AT BEDTIME
     Dates: start: 20110705, end: 20110706

REACTIONS (2)
  - MEMORY IMPAIRMENT [None]
  - IMPAIRED DRIVING ABILITY [None]
